FAERS Safety Report 13019047 (Version 1)
Quarter: 2016Q4

REPORT INFORMATION
  Report Type: Spontaneous
  Country: FR (occurrence: FR)
  Receive Date: 20161212
  Receipt Date: 20161212
  Transmission Date: 20170207
  Serious: Yes (Hospitalization, Other)
  Sender: FDA-Public Use
  Company Number: FR-GILEAD-2016-0247782

PATIENT
  Age: 31 Year
  Sex: Female

DRUGS (7)
  1. VIREAD [Suspect]
     Active Substance: TENOFOVIR DISOPROXIL FUMARATE
     Indication: HIV INFECTION
     Dosage: 245 MG, QD
     Route: 048
     Dates: start: 20160722, end: 20161011
  2. ISENTRESS [Suspect]
     Active Substance: RALTEGRAVIR POTASSIUM
     Indication: HIV INFECTION
     Dosage: 400 MG, BID
     Route: 048
     Dates: start: 20160722
  3. PREZISTA [Suspect]
     Active Substance: DARUNAVIR ETHANOLATE
     Indication: HIV INFECTION
     Dosage: 600 MG, BID
     Route: 048
     Dates: start: 20160722
  4. LOPINAVIR [Concomitant]
     Active Substance: LOPINAVIR
     Dosage: UNK
     Dates: start: 201505, end: 20160722
  5. RITONAVIR. [Concomitant]
     Active Substance: RITONAVIR
     Dosage: UNK
     Dates: start: 201505
  6. ABACAVIR. [Concomitant]
     Active Substance: ABACAVIR
     Dosage: UNK
     Dates: start: 201505, end: 20160722
  7. LAMIVUDINE. [Concomitant]
     Active Substance: LAMIVUDINE
     Dosage: UNK
     Dates: start: 201505, end: 20160722

REACTIONS (3)
  - Premature delivery [Recovered/Resolved]
  - Cholestasis of pregnancy [Recovered/Resolved]
  - Maternal exposure during pregnancy [Recovered/Resolved]

NARRATIVE: CASE EVENT DATE: 20160722
